FAERS Safety Report 19917284 (Version 3)
Quarter: 2022Q4

REPORT INFORMATION
  Report Type: Spontaneous
  Country: US (occurrence: US)
  Receive Date: 20211005
  Receipt Date: 20221222
  Transmission Date: 20230113
  Serious: Yes (Death, Life-Threatening, Hospitalization, Congenital Anomaly, Other)
  Sender: FDA-Public Use
  Company Number: US-ALKEM LABORATORIES LIMITED-US-ALKEM-2021-06069

PATIENT
  Age: 65 Year
  Sex: Female

DRUGS (12)
  1. ISONIAZID [Suspect]
     Active Substance: ISONIAZID
     Indication: Disseminated tuberculosis
     Dosage: UNK
     Route: 065
  2. MYCOPHENOLATE MOFETIL [Suspect]
     Active Substance: MYCOPHENOLATE MOFETIL
     Indication: Immunosuppressant drug therapy
     Dosage: UNK
     Route: 065
  3. TACROLIMUS [Suspect]
     Active Substance: TACROLIMUS
     Indication: Immunosuppressant drug therapy
     Dosage: UNK
     Route: 065
  4. CEPHALEXIN [Suspect]
     Active Substance: CEPHALEXIN
     Indication: Immunosuppressant drug therapy
     Dosage: UNK
     Route: 065
  5. BASILIXIMAB [Suspect]
     Active Substance: BASILIXIMAB
     Indication: Immunosuppressant drug therapy
     Dosage: UNK
     Route: 065
  6. ETHAMBUTOL [Suspect]
     Active Substance: ETHAMBUTOL HYDROCHLORIDE
     Indication: Disseminated tuberculosis
     Dosage: UNK
     Route: 065
  7. METRONIDAZOLE [Suspect]
     Active Substance: METRONIDAZOLE
     Indication: Clostridium difficile colitis
     Dosage: UNK
     Route: 042
  8. PREDNISONE [Suspect]
     Active Substance: PREDNISONE
     Indication: Immunosuppressant drug therapy
     Dosage: UNK
     Route: 065
  9. PYRAZINAMIDE [Suspect]
     Active Substance: PYRAZINAMIDE
     Indication: Disseminated tuberculosis
     Dosage: UNK
     Route: 065
  10. RIFAMPIN [Suspect]
     Active Substance: RIFAMPIN
     Indication: Disseminated tuberculosis
     Dosage: UNK
     Route: 065
  11. LINEZOLID [Concomitant]
     Active Substance: LINEZOLID
     Indication: Mastitis bacterial
     Dosage: UNK
     Route: 065
  12. OXYGEN [Concomitant]
     Active Substance: OXYGEN
     Indication: Dyspnoea
     Dosage: 2 LITER (EVERY 1 MINUTE)
     Route: 045

REACTIONS (18)
  - Bacteraemia [Fatal]
  - Clostridium difficile colitis [Fatal]
  - Disseminated intravascular coagulation [Fatal]
  - Disseminated tuberculosis [Fatal]
  - Distributive shock [Fatal]
  - Mastitis bacterial [Fatal]
  - Multiple organ dysfunction syndrome [Fatal]
  - Oedematous kidney [Fatal]
  - Oedematous pancreatitis [Fatal]
  - Pancreatitis acute [Fatal]
  - Pancreatitis haemorrhagic [Fatal]
  - Infectious pleural effusion [Fatal]
  - Toxicity to various agents [Fatal]
  - Aspergillus infection [Unknown]
  - Citrobacter infection [Unknown]
  - Klebsiella infection [Unknown]
  - Respiratory syncytial virus infection [Unknown]
  - Staphylococcal infection [Unknown]
